FAERS Safety Report 7308733-4 (Version None)
Quarter: 2011Q1

REPORT INFORMATION
  Report Type: 
  Country: None (occurrence: None)
  Receive Date: 20110223
  Receipt Date: 20110211
  Transmission Date: 20110831
  Serious: Yes (Hospitalization)
  Sender: FDA-Public Use
  Company Number: PHHY2011FR11281

PATIENT
  Sex: Male

DRUGS (8)
  1. TAHOR [Concomitant]
     Dosage: 40 MG, QD
  2. MANTADIX [Concomitant]
     Dosage: 100 MG, BID
  3. RAMIPRIL [Concomitant]
     Dosage: 5 MG, BID
  4. DEPAKENE [Suspect]
     Dosage: 1250 MG, DAILY
     Route: 048
  5. ASPIRIN [Concomitant]
     Dosage: 160 MG, QD
  6. TEGRETOL [Suspect]
     Dosage: 400 MG, UNK
     Route: 048
     Dates: end: 20101105
  7. TEGRETOL [Suspect]
     Dosage: 200 MG, QD
     Route: 048
     Dates: start: 20101106, end: 20101111
  8. MODOPAR [Concomitant]
     Dosage: 1 DF, TID

REACTIONS (6)
  - COMA SCALE ABNORMAL [None]
  - STATUS EPILEPTICUS [None]
  - EYE MOVEMENT DISORDER [None]
  - CONVULSION [None]
  - SOMNOLENCE [None]
  - HYPONATRAEMIA [None]
